FAERS Safety Report 24780665 (Version 1)
Quarter: 2024Q4

REPORT INFORMATION
  Report Type: Report from Study
  Country: DE (occurrence: DE)
  Receive Date: 20241227
  Receipt Date: 20241227
  Transmission Date: 20250115
  Serious: Yes (Hospitalization)
  Sender: ABBVIE
  Company Number: DE-ABBVIE-6064107

PATIENT

DRUGS (3)
  1. RINVOQ [Suspect]
     Active Substance: UPADACITINIB
     Indication: Rheumatoid arthritis
     Route: 048
     Dates: end: 202304
  2. METHOTREXATE [Concomitant]
     Active Substance: METHOTREXATE
     Indication: Product used for unknown indication
     Dates: end: 202304
  3. IMIPENEM [Concomitant]
     Active Substance: IMIPENEM
     Indication: Product used for unknown indication
     Route: 042

REACTIONS (4)
  - Postoperative wound infection [Recovered/Resolved]
  - Pyrexia [Recovered/Resolved]
  - Inflammatory marker increased [Recovered/Resolved]
  - Wound secretion [Recovered/Resolved]

NARRATIVE: CASE EVENT DATE: 20230501
